FAERS Safety Report 10748022 (Version 2)
Quarter: 2015Q1

REPORT INFORMATION
  Report Type: Spontaneous
  Country: JP (occurrence: JP)
  Receive Date: 20150129
  Receipt Date: 20150205
  Transmission Date: 20150721
  Serious: Yes (Death, Other)
  Sender: FDA-Public Use
  Company Number: JP-GLAXOSMITHKLINE-JP2015JPN006686

PATIENT
  Age: 74 Year
  Sex: Male

DRUGS (7)
  1. BONOTEO [Concomitant]
     Active Substance: MINODRONIC ACID
  2. MAGLAX [Concomitant]
     Active Substance: MAGNESIUM OXIDE
  3. PREDONINE [Concomitant]
     Active Substance: PREDNISOLONE\PREDNISOLONE ACETATE\PREDNISOLONE SODIUM SUCCINATE
     Indication: INTERSTITIAL LUNG DISEASE
     Dosage: 50 MG, QD
     Dates: start: 20141009
  4. SENNOSIDE [Concomitant]
     Active Substance: SENNOSIDES
  5. SAMITREL [Suspect]
     Active Substance: ATOVAQUONE
     Indication: ANTIFUNGAL PROPHYLAXIS
     Dosage: 1500 MG, QD
     Route: 048
     Dates: end: 20150114
  6. PREDONINE [Concomitant]
     Active Substance: PREDNISOLONE\PREDNISOLONE ACETATE\PREDNISOLONE SODIUM SUCCINATE
     Dosage: 25 MG, QD
     Dates: start: 20141218
  7. TAKEPRON [Concomitant]
     Active Substance: LANSOPRAZOLE
     Dosage: 15 MG, QD

REACTIONS (4)
  - Hepatic function abnormal [Unknown]
  - Completed suicide [Fatal]
  - Liver disorder [Not Recovered/Not Resolved]
  - Jaundice [Unknown]

NARRATIVE: CASE EVENT DATE: 20150107
